FAERS Safety Report 4819320-1 (Version None)
Quarter: 2005Q4

REPORT INFORMATION
  Report Type: 
  Country: None (occurrence: None)
  Receive Date: 20051012
  Receipt Date: 20050805
  Transmission Date: 20060501
  Serious: No
  Sender: FDA-Public Use
  Company Number: A03200502395

PATIENT
  Sex: Male

DRUGS (8)
  1. UROXATRAL [Suspect]
     Indication: BLADDER DISORDER
     Dosage: ORAL
     Route: 048
     Dates: start: 20050803
  2. UROXATRAL [Suspect]
     Indication: PROSTATIC DISORDER
     Dosage: ORAL
     Route: 048
     Dates: start: 20050803
  3. CIPROFLOXACIN [Concomitant]
  4. VERAPAMIL [Concomitant]
  5. ANXIETY PILL [Concomitant]
  6. ANTIPSYCHOTIC [Concomitant]
  7. TRAZODONE [Concomitant]
  8. TAMSULOSIN HCL [Concomitant]

REACTIONS (3)
  - DYSURIA [None]
  - NAUSEA [None]
  - URINARY RETENTION [None]
